FAERS Safety Report 24314796 (Version 1)
Quarter: 2024Q3

REPORT INFORMATION
  Report Type: Spontaneous
  Country: US (occurrence: US)
  Receive Date: 20240913
  Receipt Date: 20240913
  Transmission Date: 20241017
  Serious: No
  Sender: ALEXION PHARMACEUTICALS
  Company Number: US-AstraZeneca-CH-00702576A

PATIENT
  Sex: Male
  Weight: 58 kg

DRUGS (2)
  1. ULTOMIRIS [Suspect]
     Active Substance: RAVULIZUMAB-CWVZ
     Indication: Product used for unknown indication
     Dosage: UNK
     Route: 065
  2. VOYDEYA [Suspect]
     Active Substance: DANICOPAN
     Indication: Essential thrombocythaemia
     Dosage: 150MILLIGRAMS, TID
     Route: 048
     Dates: start: 20240529

REACTIONS (3)
  - Hepatic enzyme increased [Recovering/Resolving]
  - Fatigue [Recovered/Resolved]
  - Off label use [Unknown]
